FAERS Safety Report 4756183-7 (Version None)
Quarter: 2005Q3

REPORT INFORMATION
  Report Type: 
  Country: None (occurrence: None)
  Receive Date: 20050830
  Receipt Date: 20050418
  Transmission Date: 20060218
  Serious: Yes (Other)
  Sender: FDA-Public Use
  Company Number: US-GLAXOSMITHKLINE-A0554511A

PATIENT
  Age: 41 Year
  Sex: Female
  Weight: 70.5 kg

DRUGS (3)
  1. WELLBUTRIN [Suspect]
     Indication: DEPRESSION
     Dosage: 300MG PER DAY
     Route: 048
     Dates: start: 20040201
  2. PAXIL [Concomitant]
  3. SYNTHROID [Concomitant]

REACTIONS (2)
  - COMPLEX PARTIAL SEIZURES [None]
  - DISORIENTATION [None]
